FAERS Safety Report 9055751 (Version 4)
Quarter: 2013Q2

REPORT INFORMATION
  Report Type: Spontaneous
  Country: US (occurrence: US)
  Receive Date: 20130206
  Receipt Date: 20130412
  Transmission Date: 20140414
  Serious: Yes (Hospitalization)
  Sender: FDA-Public Use
  Company Number: US-BAXTER-2013BAX002928

PATIENT
  Age: 83 Year
  Sex: Female

DRUGS (2)
  1. DIANEAL PD2 [Suspect]
     Indication: PERITONEAL DIALYSIS
     Route: 033
  2. DIANEAL PD2 [Suspect]
     Indication: PERITONEAL DIALYSIS
     Route: 033
     Dates: start: 20111019

REACTIONS (4)
  - Pelvic fracture [Recovered/Resolved]
  - Pneumonia [Recovering/Resolving]
  - Staphylococcal infection [Recovered/Resolved]
  - Fall [Recovering/Resolving]
